FAERS Safety Report 10412659 (Version 1)
Quarter: 2014Q2

REPORT INFORMATION
  Report Type: Spontaneous
  Country: US (occurrence: None)
  Receive Date: 20140604
  Receipt Date: 20140604
  Transmission Date: 20141212
  Serious: Yes (Other)
  Sender: FDA-Public Use
  Company Number: 163-POMAL-14041502

PATIENT
  Age: 57 Year
  Sex: Male
  Weight: 104 kg

DRUGS (4)
  1. POMALYST [Suspect]
     Indication: PLASMA CELL MYELOMA
     Route: 048
     Dates: start: 201403
  2. ECOTRIN (ACETYLSALICYLIC ACID) [Concomitant]
  3. DEXAMETHASONE [Concomitant]
  4. ASPIRIN [Concomitant]

REACTIONS (1)
  - Thrombosis [None]
